FAERS Safety Report 7120069-3 (Version None)
Quarter: 2010Q4

REPORT INFORMATION
  Report Type: 
  Country: None (occurrence: None)
  Receive Date: 20101123
  Receipt Date: 20101119
  Transmission Date: 20110411
  Serious: Yes (Other)
  Sender: FDA-Public Use
  Company Number: US-PFIZER INC-2010070345

PATIENT
  Sex: Female
  Weight: 67 kg

DRUGS (10)
  1. LIPITOR [Suspect]
     Indication: HYPERLIPIDAEMIA
     Dosage: 10 MG, 1X/DAY
     Dates: end: 20100701
  2. LIPITOR [Suspect]
     Indication: BLOOD CHOLESTEROL INCREASED
  3. PREMPRO [Suspect]
     Indication: PRODUCT USED FOR UNKNOWN INDICATION
     Dosage: [CONJUGATED ESTROGENS 0.3]/[MEDROXYPROGESTERONE1.5 MG]
  4. PREMPRO [Suspect]
     Dosage: UNK
     Dates: start: 19820101, end: 20070101
  5. PREMPRO [Suspect]
     Dosage: TAPERED
     Dates: start: 20070101
  6. PREMPRO [Suspect]
     Dosage: RESUMED DAILY
     Dates: start: 20100101
  7. PREMPRO [Suspect]
     Dosage: RESUMED DAILY
     Dates: start: 20100101
  8. POTASSIUM [Concomitant]
     Dosage: UNK
  9. NORVASC [Concomitant]
     Dosage: UNK
  10. VITAMIN B [Concomitant]
     Dosage: UNK

REACTIONS (12)
  - ASTHENIA [None]
  - AUTOIMMUNE THYROIDITIS [None]
  - FATIGUE [None]
  - HOSTILITY [None]
  - IRRITABILITY [None]
  - MENIERE'S DISEASE [None]
  - MUSCLE SPASMS [None]
  - MUSCULAR WEAKNESS [None]
  - MYALGIA [None]
  - PAIN [None]
  - SKIN DISORDER [None]
  - WITHDRAWAL SYNDROME [None]
